FAERS Safety Report 26174729 (Version 1)
Quarter: 2025Q4

REPORT INFORMATION
  Report Type: Report from Study
  Country: US (occurrence: US)
  Receive Date: 20251218
  Receipt Date: 20251218
  Transmission Date: 20260118
  Serious: Yes (Other)
  Sender: ALEXION PHARMACEUTICALS
  Company Number: US-AstraZeneca-CH-00996515A

PATIENT
  Sex: Female

DRUGS (2)
  1. TEZEPELUMAB [Suspect]
     Active Substance: TEZEPELUMAB
     Dosage: UNK
     Route: 065
  2. TEZEPELUMAB [Suspect]
     Active Substance: TEZEPELUMAB

REACTIONS (2)
  - Fall [Unknown]
  - Localised infection [Unknown]
